FAERS Safety Report 13829376 (Version 1)
Quarter: 2017Q3

REPORT INFORMATION
  Report Type: Spontaneous
  Country: US (occurrence: US)
  Receive Date: 20170803
  Receipt Date: 20170803
  Transmission Date: 20171127
  Serious: No
  Sender: FDA-Public Use
  Company Number: None

PATIENT

DRUGS (2)
  1. INSULIN U-500 [Suspect]
     Active Substance: INSULIN HUMAN
     Dosage: TYPE - SYRINGE
  2. INSULIN U-100 [Suspect]
     Active Substance: INSULIN NOS
     Dosage: TYPE - SYRINGE

REACTIONS (2)
  - Incorrect dose administered [None]
  - Drug dispensing error [None]
